FAERS Safety Report 6530941-0 (Version None)
Quarter: 2010Q1

REPORT INFORMATION
  Report Type: 
  Country: None (occurrence: None)
  Receive Date: 20100108
  Receipt Date: 20090623
  Transmission Date: 20100710
  Serious: No
  Sender: FDA-Public Use
  Company Number: A0793292A

PATIENT
  Age: 70 Year
  Sex: Female

DRUGS (6)
  1. LOVAZA [Suspect]
     Dosage: 2CAP TWICE PER DAY
     Route: 048
     Dates: start: 20080101
  2. SINGULAIR [Suspect]
     Dosage: 10MG PER DAY
     Route: 048
     Dates: start: 20090501
  3. CRESTOR [Concomitant]
  4. COREG [Concomitant]
  5. PLAVIX [Concomitant]
  6. ALLEGRA [Concomitant]

REACTIONS (11)
  - ABDOMINAL DISTENSION [None]
  - CHILLS [None]
  - COUGH [None]
  - DIZZINESS [None]
  - EAR DISCOMFORT [None]
  - FLATULENCE [None]
  - INFLUENZA [None]
  - NASAL CONGESTION [None]
  - PAIN [None]
  - PAIN IN EXTREMITY [None]
  - PRODUCTIVE COUGH [None]
